FAERS Safety Report 9562741 (Version 1)
Quarter: 2013Q3

REPORT INFORMATION
  Report Type: Spontaneous
  Country: US (occurrence: US)
  Receive Date: 20130927
  Receipt Date: 20130927
  Transmission Date: 20140515
  Serious: Yes (Hospitalization)
  Sender: FDA-Public Use
  Company Number: US-BAXTER-2013BAX037117

PATIENT
  Age: 16 Year
  Sex: Female

DRUGS (2)
  1. DIANEAL PD2 [Suspect]
     Indication: PERITONEAL DIALYSIS
     Route: 033
     Dates: start: 201307
  2. DIANEAL PD2 [Suspect]
     Indication: PERITONEAL DIALYSIS
     Route: 033
     Dates: start: 201307

REACTIONS (1)
  - Device related infection [Recovering/Resolving]
